FAERS Safety Report 8765469 (Version 3)
Quarter: 2012Q4

REPORT INFORMATION
  Report Type: 
  Country: US (occurrence: US)
  Receive Date: 20120903
  Receipt Date: 20121001
  Transmission Date: 20130627
  Serious: No
  Sender: FDA-Public Use
  Company Number: US-PFIZER INC-2012214732

PATIENT
  Age: 25 Year
  Sex: Female
  Weight: 53.97 kg

DRUGS (2)
  1. ENBREL [Suspect]
     Indication: PSORIATIC ARTHROPATHY
     Dosage: UNK
     Dates: start: 20120817, end: 20120824
  2. SULFASALAZINE [Suspect]
     Dosage: UNK

REACTIONS (1)
  - Rash [Recovering/Resolving]
